FAERS Safety Report 4396885-8 (Version None)
Quarter: 2004Q3

REPORT INFORMATION
  Report Type: 
  Country: None (occurrence: None)
  Receive Date: 20040713
  Receipt Date: 20040713
  Transmission Date: 20050211
  Serious: Yes (Hospitalization)
  Sender: FDA-Public Use
  Company Number: None

PATIENT
  Age: 59 Year
  Sex: Female
  Weight: 56.8 kg

DRUGS (22)
  1. CARBOPLATIN [Suspect]
     Indication: NEOPLASM RECURRENCE
     Dosage: 685 MG (DAY 1 OF 28 DAY CYCLE)
     Dates: start: 20040602
  2. CARBOPLATIN [Suspect]
     Indication: SINUS CANCER METASTATIC
     Dosage: 685 MG (DAY 1 OF 28 DAY CYCLE)
     Dates: start: 20040602
  3. CARBOPLATIN [Suspect]
     Indication: NEOPLASM RECURRENCE
     Dosage: 685 MG (DAY 1 OF 28 DAY CYCLE)
     Dates: start: 20040629
  4. CARBOPLATIN [Suspect]
     Indication: SINUS CANCER METASTATIC
     Dosage: 685 MG (DAY 1 OF 28 DAY CYCLE)
     Dates: start: 20040629
  5. DOCETAXEL 30 MG/M2 [Suspect]
     Indication: NEOPLASM RECURRENCE
     Dosage: 48 MG (DAY 1, 8, 15 OF CYCLE)
     Dates: start: 20040602
  6. DOCETAXEL 30 MG/M2 [Suspect]
     Indication: SINUS CANCER METASTATIC
     Dosage: 48 MG (DAY 1, 8, 15 OF CYCLE)
     Dates: start: 20040602
  7. DOCETAXEL 30 MG/M2 [Suspect]
     Indication: NEOPLASM RECURRENCE
     Dosage: 48 MG (DAY 1, 8, 15 OF CYCLE)
     Dates: start: 20040616
  8. DOCETAXEL 30 MG/M2 [Suspect]
     Indication: SINUS CANCER METASTATIC
     Dosage: 48 MG (DAY 1, 8, 15 OF CYCLE)
     Dates: start: 20040616
  9. DOCETAXEL 30 MG/M2 [Suspect]
     Indication: NEOPLASM RECURRENCE
     Dosage: 48 MG (DAY 1, 8, 15 OF CYCLE)
     Dates: start: 20040629
  10. DOCETAXEL 30 MG/M2 [Suspect]
     Indication: SINUS CANCER METASTATIC
     Dosage: 48 MG (DAY 1, 8, 15 OF CYCLE)
     Dates: start: 20040629
  11. IFOSFAMIDE [Suspect]
     Indication: NEOPLASM RECURRENCE
     Dosage: 1600 MG (DAY 1, 8, 15 OF 28 D CYCLE)
     Dates: start: 20040602
  12. IFOSFAMIDE [Suspect]
     Indication: SINUS CANCER METASTATIC
     Dosage: 1600 MG (DAY 1, 8, 15 OF 28 D CYCLE)
     Dates: start: 20040602
  13. IFOSFAMIDE [Suspect]
     Indication: NEOPLASM RECURRENCE
     Dosage: 1600 MG (DAY 1, 8, 15 OF 28 D CYCLE)
     Dates: start: 20040616
  14. IFOSFAMIDE [Suspect]
     Indication: SINUS CANCER METASTATIC
     Dosage: 1600 MG (DAY 1, 8, 15 OF 28 D CYCLE)
     Dates: start: 20040616
  15. IFOSFAMIDE [Suspect]
     Indication: NEOPLASM RECURRENCE
     Dosage: 1600 MG (DAY 1, 8, 15 OF 28 D CYCLE)
     Dates: start: 20040629
  16. IFOSFAMIDE [Suspect]
     Indication: SINUS CANCER METASTATIC
     Dosage: 1600 MG (DAY 1, 8, 15 OF 28 D CYCLE)
     Dates: start: 20040629
  17. MESNA [Suspect]
     Indication: NEOPLASM RECURRENCE
     Dosage: 1600 MG  (DAY 1, 8, 15 OF 28 D CYCLE)
     Dates: start: 20040602
  18. MESNA [Suspect]
     Indication: SINUS CANCER METASTATIC
     Dosage: 1600 MG  (DAY 1, 8, 15 OF 28 D CYCLE)
     Dates: start: 20040602
  19. MESNA [Suspect]
     Indication: NEOPLASM RECURRENCE
     Dosage: 1600 MG  (DAY 1, 8, 15 OF 28 D CYCLE)
     Dates: start: 20040616
  20. MESNA [Suspect]
     Indication: SINUS CANCER METASTATIC
     Dosage: 1600 MG  (DAY 1, 8, 15 OF 28 D CYCLE)
     Dates: start: 20040616
  21. MESNA [Suspect]
     Indication: NEOPLASM RECURRENCE
     Dosage: 1600 MG  (DAY 1, 8, 15 OF 28 D CYCLE)
     Dates: start: 20040629
  22. MESNA [Suspect]
     Indication: SINUS CANCER METASTATIC
     Dosage: 1600 MG  (DAY 1, 8, 15 OF 28 D CYCLE)
     Dates: start: 20040629

REACTIONS (4)
  - ASTHENIA [None]
  - DISEASE PROGRESSION [None]
  - PAIN [None]
  - VOMITING [None]
